FAERS Safety Report 6445861-X (Version None)
Quarter: 2009Q4

REPORT INFORMATION
  Report Type: 
  Country: None (occurrence: None)
  Receive Date: 20091119
  Receipt Date: 20091110
  Transmission Date: 20100525
  Serious: Yes (Other)
  Sender: FDA-Public Use
  Company Number: US-ASTRAZENECA-2006UW26312

PATIENT
  Age: 15766 Day
  Sex: Female
  Weight: 137 kg

DRUGS (6)
  1. SEROQUEL [Suspect]
     Indication: PSYCHOTIC DISORDER
     Route: 048
     Dates: start: 20030512
  2. SEROQUEL [Suspect]
     Indication: SCHIZOPHRENIA
     Route: 048
     Dates: start: 20030512
  3. SEROQUEL [Suspect]
     Route: 048
     Dates: start: 20030716
  4. SEROQUEL [Suspect]
     Route: 048
     Dates: start: 20030716
  5. IBUPROFEN [Concomitant]
     Dosage: 600-800 MG
     Route: 048
     Dates: start: 20001202
  6. NEXIUM [Concomitant]
     Route: 048
     Dates: start: 20020731

REACTIONS (3)
  - DIABETES MELLITUS [None]
  - DIABETIC NEUROPATHY [None]
  - TYPE 2 DIABETES MELLITUS [None]
